FAERS Safety Report 15563676 (Version 1)
Quarter: 2018Q4

REPORT INFORMATION
  Report Type: Spontaneous
  Country: GB (occurrence: GB)
  Receive Date: 20181029
  Receipt Date: 20181029
  Transmission Date: 20190205
  Serious: Yes (Other)
  Sender: FDA-Public Use
  Company Number: GB-TEVA-2018-GB-969650

PATIENT
  Age: 53 Year
  Sex: Female

DRUGS (2)
  1. PARACETAMOL [Concomitant]
     Active Substance: ACETAMINOPHEN
     Indication: ANALGESIC THERAPY
     Dosage: 500MG-1G
     Route: 048
     Dates: start: 20180717
  2. IBUPROFEN. [Suspect]
     Active Substance: IBUPROFEN
     Indication: POSTOPERATIVE ANALGESIA
     Dosage: STOP DATE NOT KNOWN.
     Route: 048
     Dates: start: 20180717

REACTIONS (5)
  - Fixed eruption [Recovered/Resolved]
  - Pruritus [Recovered/Resolved]
  - Photosensitivity reaction [Recovered/Resolved]
  - Pain [Unknown]
  - Erythema [Recovered/Resolved]

NARRATIVE: CASE EVENT DATE: 20180802
